FAERS Safety Report 13689089 (Version 4)
Quarter: 2017Q3

REPORT INFORMATION
  Report Type: Spontaneous
  Country: JP (occurrence: JP)
  Receive Date: 20170626
  Receipt Date: 20170724
  Transmission Date: 20171127
  Serious: Yes (Disabling)
  Sender: FDA-Public Use
  Company Number: JP-ASTELLAS-2017JP010129AA

PATIENT
  Age: 62 Year
  Sex: Male
  Weight: 62 kg

DRUGS (8)
  1. VESICARE [Suspect]
     Active Substance: SOLIFENACIN SUCCINATE
     Route: 048
  2. ZALUTIA [Concomitant]
     Active Substance: TADALAFIL
     Indication: BENIGN PROSTATIC HYPERPLASIA
     Route: 048
     Dates: start: 20170516
  3. MINIRINMELTOD [Concomitant]
     Indication: NOCTURIA
     Route: 048
     Dates: start: 20160220, end: 20160612
  4. VESICARE [Suspect]
     Active Substance: SOLIFENACIN SUCCINATE
     Indication: POLLAKIURIA
     Route: 048
     Dates: start: 20150831
  5. MAGLAX [Concomitant]
     Active Substance: MAGNESIUM OXIDE
     Indication: CONSTIPATION
     Route: 048
     Dates: start: 20150924, end: 20160119
  6. CERNILTON                          /00521401/ [Concomitant]
     Indication: PROSTATITIS
     Route: 048
     Dates: start: 20150622, end: 20160205
  7. HARNAL [Concomitant]
     Active Substance: TAMSULOSIN HYDROCHLORIDE
     Indication: BENIGN PROSTATIC HYPERPLASIA
     Dosage: 0.2 MG, ONCE DAILY
     Route: 048
     Dates: start: 20161005
  8. SOLANTAL [Concomitant]
     Active Substance: TIARAMIDE
     Indication: PROSTATITIS
     Dosage: UNK UNK, THRICE DAILY
     Route: 048
     Dates: start: 20150831, end: 20160205

REACTIONS (2)
  - Ejaculation disorder [Not Recovered/Not Resolved]
  - Intentional product misuse [Unknown]

NARRATIVE: CASE EVENT DATE: 20150831
